FAERS Safety Report 23052144 (Version 1)
Quarter: 2023Q4

REPORT INFORMATION
  Report Type: Spontaneous
  Country: US (occurrence: US)
  Receive Date: 20231010
  Receipt Date: 20231010
  Transmission Date: 20240109
  Serious: No
  Sender: FDA-Public Use
  Company Number: US-LUNDBECK-DKLU3068380

PATIENT
  Age: 20 Year

DRUGS (1)
  1. SABRIL [Suspect]
     Active Substance: VIGABATRIN
     Indication: Seizure
     Route: 065

REACTIONS (4)
  - Depression [Unknown]
  - Dizziness [Unknown]
  - Weight increased [Unknown]
  - Balance disorder [Unknown]
